FAERS Safety Report 4307720-8 (Version None)
Quarter: 2004Q1

REPORT INFORMATION
  Report Type: 
  Country: None (occurrence: None)
  Receive Date: 20040225
  Receipt Date: 20031110
  Transmission Date: 20041129
  Serious: Yes (Disabling)
  Sender: FDA-Public Use
  Company Number: WAES 0311USA00993

PATIENT
  Age: 75 Year
  Sex: Female

DRUGS (11)
  1. ZOCOR [Suspect]
     Dosage: 40 MG/HS/PO
     Route: 048
  2. BENADRYL [Concomitant]
  3. CELEBREX [Concomitant]
  4. DETROL [Concomitant]
  5. EVISTA [Concomitant]
  6. LEVAQUIN [Concomitant]
  7. NORVASC [Concomitant]
  8. VASOTEC [Concomitant]
  9. ZOLOFT [Concomitant]
  10. ASPIRIN [Concomitant]
  11. HYDROCHLOROTHIAZIDE [Concomitant]

REACTIONS (2)
  - ARTHRALGIA [None]
  - BLADDER CANCER [None]
